FAERS Safety Report 10204924 (Version 1)
Quarter: 2014Q2

REPORT INFORMATION
  Report Type: Spontaneous
  Country: BE (occurrence: BE)
  Receive Date: 20140529
  Receipt Date: 20140529
  Transmission Date: 20141212
  Serious: Yes (Other)
  Sender: FDA-Public Use
  Company Number: BE-VERTEX PHARMACEUTICALS INC-2014-002527

PATIENT
  Age: 69 Year
  Sex: Male

DRUGS (8)
  1. INCIVO [Suspect]
     Indication: CHRONIC HEPATITIS C
     Dosage: DIALY DOSE: 2250 MG
     Route: 048
     Dates: start: 20121015, end: 20121231
  2. PEGINTERFERON ALFA-2A [Suspect]
     Indication: CHRONIC HEPATITIS C
     Dosage: 180 ?G, QW
     Route: 058
     Dates: start: 20121015, end: 20121231
  3. RIBAVIRIN [Suspect]
     Indication: CHRONIC HEPATITIS C
     Dosage: 1000 MG, QD
     Route: 048
     Dates: start: 20121015, end: 20121231
  4. CARDIOASPIRINE [Concomitant]
     Dosage: 100 MG, QD
     Route: 048
     Dates: start: 20100202
  5. COAPROVEL [Concomitant]
     Indication: HYPERTENSION
     Dosage: 300 MG, QD
     Route: 048
     Dates: start: 20100103
  6. METFORMIN [Concomitant]
     Indication: TYPE 2 DIABETES MELLITUS
     Dosage: DOSAGE FORM: UNSPECIFIED, 850 UNIT NOT REPORTED
     Route: 048
     Dates: start: 20100203
  7. TENORMIN [Concomitant]
     Indication: HYPERTENSION
     Dosage: 50 MG, QD
     Route: 048
     Dates: start: 20100103
  8. LIPITOR [Concomitant]
     Indication: DYSLIPIDAEMIA
     Dosage: 20 MG, QD
     Route: 048
     Dates: start: 20100103

REACTIONS (1)
  - Pancytopenia [Recovered/Resolved]
